FAERS Safety Report 25229630 (Version 1)
Quarter: 2025Q2

REPORT INFORMATION
  Report Type: Spontaneous
  Country: CA (occurrence: CA)
  Receive Date: 20250423
  Receipt Date: 20250423
  Transmission Date: 20250716
  Serious: Yes (Other)
  Sender: MYLAN
  Company Number: CA-MYLANLABS-2025M1034266

PATIENT
  Age: 15 Year
  Sex: Female

DRUGS (40)
  1. ATORVASTATIN [Interacting]
     Active Substance: ATORVASTATIN
     Indication: Product used for unknown indication
  2. ATORVASTATIN [Interacting]
     Active Substance: ATORVASTATIN
     Route: 048
  3. ATORVASTATIN [Interacting]
     Active Substance: ATORVASTATIN
     Route: 048
  4. ATORVASTATIN [Interacting]
     Active Substance: ATORVASTATIN
  5. AZITHROMYCIN [Interacting]
     Active Substance: AZITHROMYCIN
     Indication: Product used for unknown indication
  6. AZITHROMYCIN [Interacting]
     Active Substance: AZITHROMYCIN
     Route: 048
  7. AZITHROMYCIN [Interacting]
     Active Substance: AZITHROMYCIN
     Route: 048
  8. AZITHROMYCIN [Interacting]
     Active Substance: AZITHROMYCIN
  9. MYCOPHENOLATE MOFETIL [Interacting]
     Active Substance: MYCOPHENOLATE MOFETIL
     Indication: Prophylaxis against transplant rejection
  10. MYCOPHENOLATE MOFETIL [Interacting]
     Active Substance: MYCOPHENOLATE MOFETIL
     Route: 048
  11. MYCOPHENOLATE MOFETIL [Interacting]
     Active Substance: MYCOPHENOLATE MOFETIL
     Route: 048
  12. MYCOPHENOLATE MOFETIL [Interacting]
     Active Substance: MYCOPHENOLATE MOFETIL
  13. PANTOPRAZOLE SODIUM [Interacting]
     Active Substance: PANTOPRAZOLE SODIUM
     Indication: Product used for unknown indication
  14. PANTOPRAZOLE SODIUM [Interacting]
     Active Substance: PANTOPRAZOLE SODIUM
     Route: 048
  15. PANTOPRAZOLE SODIUM [Interacting]
     Active Substance: PANTOPRAZOLE SODIUM
     Route: 048
  16. PANTOPRAZOLE SODIUM [Interacting]
     Active Substance: PANTOPRAZOLE SODIUM
  17. PREDNISONE [Interacting]
     Active Substance: PREDNISONE
     Indication: Product used for unknown indication
  18. PREDNISONE [Interacting]
     Active Substance: PREDNISONE
     Route: 048
  19. PREDNISONE [Interacting]
     Active Substance: PREDNISONE
     Route: 048
  20. PREDNISONE [Interacting]
     Active Substance: PREDNISONE
  21. LANSOPRAZOLE [Interacting]
     Active Substance: LANSOPRAZOLE
     Indication: Product used for unknown indication
  22. LANSOPRAZOLE [Interacting]
     Active Substance: LANSOPRAZOLE
     Route: 048
  23. LANSOPRAZOLE [Interacting]
     Active Substance: LANSOPRAZOLE
     Route: 048
  24. LANSOPRAZOLE [Interacting]
     Active Substance: LANSOPRAZOLE
  25. SULFAMETHOXAZOLE\TRIMETHOPRIM [Interacting]
     Active Substance: SULFAMETHOXAZOLE\TRIMETHOPRIM
     Indication: Product used for unknown indication
  26. SULFAMETHOXAZOLE\TRIMETHOPRIM [Interacting]
     Active Substance: SULFAMETHOXAZOLE\TRIMETHOPRIM
     Route: 048
  27. SULFAMETHOXAZOLE\TRIMETHOPRIM [Interacting]
     Active Substance: SULFAMETHOXAZOLE\TRIMETHOPRIM
     Route: 048
  28. SULFAMETHOXAZOLE\TRIMETHOPRIM [Interacting]
     Active Substance: SULFAMETHOXAZOLE\TRIMETHOPRIM
  29. TACROLIMUS [Interacting]
     Active Substance: TACROLIMUS
     Indication: Prophylaxis against transplant rejection
  30. TACROLIMUS [Interacting]
     Active Substance: TACROLIMUS
     Route: 048
  31. TACROLIMUS [Interacting]
     Active Substance: TACROLIMUS
     Route: 048
  32. TACROLIMUS [Interacting]
     Active Substance: TACROLIMUS
  33. VORICONAZOLE [Interacting]
     Active Substance: VORICONAZOLE
     Indication: Fungal infection
  34. VORICONAZOLE [Interacting]
     Active Substance: VORICONAZOLE
  35. VORICONAZOLE [Interacting]
     Active Substance: VORICONAZOLE
     Route: 048
  36. VORICONAZOLE [Interacting]
     Active Substance: VORICONAZOLE
     Route: 048
  37. VORICONAZOLE [Interacting]
     Active Substance: VORICONAZOLE
  38. VORICONAZOLE [Interacting]
     Active Substance: VORICONAZOLE
  39. VORICONAZOLE [Interacting]
     Active Substance: VORICONAZOLE
     Route: 048
  40. VORICONAZOLE [Interacting]
     Active Substance: VORICONAZOLE
     Route: 048

REACTIONS (6)
  - Actinic keratosis [Not Recovered/Not Resolved]
  - Photodermatosis [Not Recovered/Not Resolved]
  - Photosensitivity reaction [Not Recovered/Not Resolved]
  - Solar lentigo [Not Recovered/Not Resolved]
  - Squamous cell carcinoma of skin [Not Recovered/Not Resolved]
  - Drug interaction [Not Recovered/Not Resolved]
